FAERS Safety Report 5594303-5 (Version None)
Quarter: 2008Q1

REPORT INFORMATION
  Report Type: 
  Country: None (occurrence: None)
  Receive Date: 20080117
  Receipt Date: 20080108
  Transmission Date: 20080703
  Serious: Yes (Hospitalization, Other)
  Sender: FDA-Public Use
  Company Number: PHEH2007US14699

PATIENT
  Age: 72 Year
  Sex: Female
  Weight: 74.376 kg

DRUGS (6)
  1. EXELON PATCH [Suspect]
     Indication: DEMENTIA ALZHEIMER'S TYPE
     Dosage: 4.6 MG, QD
     Route: 062
     Dates: start: 20071010, end: 20071112
  2. VYTORIN [Concomitant]
  3. NAMENDA [Concomitant]
     Dosage: 10 MG, UNK
  4. SEROQUEL [Concomitant]
     Dosage: 25 MG, UNK
  5. ZOLOFT [Concomitant]
     Dosage: 150 MG, UNK
  6. ARICEPT [Suspect]

REACTIONS (8)
  - CONFUSIONAL STATE [None]
  - DELIRIUM [None]
  - DRUG WITHDRAWAL SYNDROME [None]
  - DYSSTASIA [None]
  - HALLUCINATION [None]
  - MUSCLE DISORDER [None]
  - TREMOR [None]
  - URINARY TRACT INFECTION [None]
